FAERS Safety Report 14438310 (Version 2)
Quarter: 2018Q2

REPORT INFORMATION
  Report Type: Spontaneous
  Country: US (occurrence: US)
  Receive Date: 20180125
  Receipt Date: 20180525
  Transmission Date: 20180711
  Serious: No
  Sender: FDA-Public Use
  Company Number: US-PFIZER INC-2018030857

PATIENT
  Age: 70 Year
  Sex: Female
  Weight: 59.42 kg

DRUGS (3)
  1. XELJANZ [Suspect]
     Active Substance: TOFACITINIB CITRATE
     Indication: RHEUMATOID ARTHRITIS
     Dosage: 5 MG, 2X/DAY
     Dates: start: 201409
  2. XELJANZ XR [Suspect]
     Active Substance: TOFACITINIB CITRATE
     Indication: RHEUMATOID ARTHRITIS
     Dosage: 11 MG, TABLET, ORALLY, ONCE
     Route: 048
  3. XELJANZ XR [Suspect]
     Active Substance: TOFACITINIB CITRATE
     Dosage: 11 MG, 1X/DAY
     Dates: start: 201703

REACTIONS (8)
  - Nasopharyngitis [Recovered/Resolved]
  - Vision blurred [Unknown]
  - Tooth loss [Unknown]
  - Gingival disorder [Recovered/Resolved]
  - Memory impairment [Not Recovered/Not Resolved]
  - Hypertonic bladder [Recovered/Resolved]
  - Eye pain [Unknown]
  - Sinusitis [Recovered/Resolved]
